FAERS Safety Report 15497608 (Version 1)
Quarter: 2018Q4

REPORT INFORMATION
  Report Type: Report from Study
  Country: ES (occurrence: ES)
  Receive Date: 20181015
  Receipt Date: 20181015
  Transmission Date: 20190205
  Serious: Yes (Other)
  Sender: FDA-Public Use
  Company Number: ES-ROCHE-2198793

PATIENT
  Age: 53 Year
  Sex: Male
  Weight: 63 kg

DRUGS (4)
  1. VEMURAFENIB. [Suspect]
     Active Substance: VEMURAFENIB
     Indication: METASTATIC MALIGNANT MELANOMA
     Dosage: LAST DOSE PRIOR TO SERIOUS ADVERSE EVENT: 23/SEP/2018
     Route: 048
     Dates: start: 20170315
  2. HYDROCHLOROTHIAZIDE. [Concomitant]
     Active Substance: HYDROCHLOROTHIAZIDE
     Route: 065
     Dates: start: 20170310
  3. ENALAPRIL [Concomitant]
     Active Substance: ENALAPRIL
     Route: 065
     Dates: start: 20170310
  4. COBIMETINIB. [Suspect]
     Active Substance: COBIMETINIB
     Indication: METASTATIC MALIGNANT MELANOMA
     Dosage: LAST DOSE PRIOR TO SERIOUS ADVERSE EVENT: 23/SEP/2018
     Route: 048
     Dates: start: 20170315

REACTIONS (1)
  - Keratoacanthoma [Recovered/Resolved]

NARRATIVE: CASE EVENT DATE: 20180924
